FAERS Safety Report 9629623 (Version 1)
Quarter: 2013Q4

REPORT INFORMATION
  Report Type: Spontaneous
  Country: US (occurrence: US)
  Receive Date: 20131017
  Receipt Date: 20131017
  Transmission Date: 20140711
  Serious: No
  Sender: FDA-Public Use
  Company Number: US-009507513-1310USA000120

PATIENT
  Sex: 0
  Weight: 45.26 kg

DRUGS (1)
  1. NEXPLANON [Suspect]
     Dosage: 1 ROD/3 YEARS
     Route: 059
     Dates: start: 20130328, end: 20130925

REACTIONS (2)
  - Device breakage [Recovered/Resolved]
  - No adverse event [Unknown]
